FAERS Safety Report 7931374-2 (Version None)
Quarter: 2011Q4

REPORT INFORMATION
  Report Type: 
  Country: None (occurrence: None)
  Receive Date: 20111121
  Receipt Date: 20110818
  Transmission Date: 20120403
  Serious: No
  Sender: FDA-Public Use
  Company Number: US-BAYER-2011-079375

PATIENT

DRUGS (4)
  1. FIORICET [Concomitant]
     Indication: PAIN
  2. ALEVE (CAPLET) [Suspect]
     Indication: PAIN
  3. ASPIRIN [Suspect]
     Indication: PAIN
  4. ACETAMINOPHEN [Concomitant]
     Indication: PAIN

REACTIONS (1)
  - PAIN [None]
